FAERS Safety Report 8956150 (Version 1)
Quarter: 2012Q4

REPORT INFORMATION
  Report Type: 
  Country: CA (occurrence: CA)
  Receive Date: 20121210
  Receipt Date: 20121210
  Transmission Date: 20130627
  Serious: Yes (Life-Threatening, Disabling, Other)
  Sender: FDA-Public Use
  Company Number: CA-B.I. PHARMACEUTICALS,INC./RIDGEFIELD-2012-CN-02502CN

PATIENT
  Age: 79 Year
  Sex: Male
  Weight: 72.57 kg

DRUGS (7)
  1. PRADAX [Suspect]
     Dosage: 220 mg
     Route: 048
  2. ASA [Concomitant]
  3. BETA-BLOCKING AGENTS [Concomitant]
  4. FERROUS GLUCONATE [Concomitant]
  5. LASIX [Concomitant]
  6. LIPITOR [Concomitant]
  7. RAMIPRIL [Concomitant]

REACTIONS (7)
  - Asthenia [Not Recovered/Not Resolved]
  - Decreased appetite [Not Recovered/Not Resolved]
  - Dysphagia [Not Recovered/Not Resolved]
  - Hiatus hernia [Not Recovered/Not Resolved]
  - Nausea [Not Recovered/Not Resolved]
  - Right ventricular failure [Not Recovered/Not Resolved]
  - Weight decreased [Not Recovered/Not Resolved]
